FAERS Safety Report 6354960-2 (Version None)
Quarter: 2009Q3

REPORT INFORMATION
  Report Type: 
  Country: None (occurrence: None)
  Receive Date: 20090914
  Receipt Date: 20090908
  Transmission Date: 20100115
  Serious: Yes (Other)
  Sender: FDA-Public Use
  Company Number: A0793608A

PATIENT
  Age: 33 Year
  Sex: Male

DRUGS (1)
  1. AVANDIA [Suspect]
     Dosage: 8MG VARIABLE DOSE
     Route: 048
     Dates: start: 19970101, end: 20070101

REACTIONS (1)
  - MYOCARDIAL INFARCTION [None]
